FAERS Safety Report 6201290-5 (Version None)
Quarter: 2009Q2

REPORT INFORMATION
  Report Type: 
  Country: None (occurrence: None)
  Receive Date: 20090526
  Receipt Date: 20090518
  Transmission Date: 20091009
  Serious: Yes (Other)
  Sender: FDA-Public Use
  Company Number: US-ROCHE-518444

PATIENT
  Sex: Female

DRUGS (6)
  1. PEG-INTERFERON A-2A (RO 25-8310) [Suspect]
     Indication: HEPATITIS C
     Route: 065
     Dates: start: 20070521
  2. PEG-INTERFERON A-2A (RO 25-8310) [Suspect]
     Dosage: DOSE REDUCED AT AN UNSPECIFIED DATE. FORMULATION: PREFILLED SYRINGE
     Route: 065
  3. PEG-INTERFERON A-2A (RO 25-8310) [Suspect]
     Route: 065
  4. RIBAVIRIN [Suspect]
     Indication: HEPATITIS C
     Dosage: FREQUENCY REPORTED AS: 3 TABLETS TWICE A DAY
     Route: 065
     Dates: start: 20070521
  5. RIBAVIRIN [Suspect]
     Dosage: REPORTS BEING ON AND OFF THE PILLS.
     Route: 065
     Dates: end: 20070901
  6. XANAX [Concomitant]
     Dosage: DOSAGE REPORTED AS: AT NIGHT AS NEEDED.

REACTIONS (3)
  - DEHYDRATION [None]
  - LOOSE TOOTH [None]
  - RASH PRURITIC [None]
